FAERS Safety Report 5800886-X (Version None)
Quarter: 2008Q3

REPORT INFORMATION
  Report Type: 
  Country: None (occurrence: None)
  Receive Date: 20080701
  Receipt Date: 20080624
  Transmission Date: 20090109
  Serious: Yes (Hospitalization, Disabling, Other)
  Sender: FDA-Public Use
  Company Number: 2005-10-0287

PATIENT
  Age: 54 Year
  Sex: Male
  Weight: 105 kg

DRUGS (4)
  1. VIRAFERONPEG [Suspect]
     Indication: HEPATITIS C
     Dosage: 800 MCG; QW; SC, 150 MCG; QW; SC
     Route: 058
     Dates: end: 20040626
  2. VIRAFERONPEG [Suspect]
     Indication: HEPATITIS C
     Dosage: 800 MCG; QW; SC, 150 MCG; QW; SC
     Route: 058
     Dates: start: 20030501
  3. REBETOL [Suspect]
     Indication: HEPATITIS C
     Dosage: 800 MG; QD; PO
     Route: 048
     Dates: start: 20030501
  4. PROZAC [Concomitant]

REACTIONS (19)
  - ANGIOPATHY [None]
  - ATROPHY [None]
  - BETA GLOBULIN INCREASED [None]
  - CSF PROTEIN INCREASED [None]
  - DECREASED ACTIVITY [None]
  - DEMYELINATION [None]
  - DEPRESSION [None]
  - DRUG INEFFECTIVE [None]
  - IMPAIRED DRIVING ABILITY [None]
  - IMPAIRED WORK ABILITY [None]
  - ISCHAEMIC NEUROPATHY [None]
  - NUCLEAR MAGNETIC RESONANCE IMAGING BRAIN ABNORMAL [None]
  - OPTIC NEURITIS [None]
  - PAPILLOEDEMA [None]
  - THROMBOCYTOPENIA [None]
  - VISUAL ACUITY REDUCED [None]
  - VISUAL FIELD DEFECT [None]
  - VITAMIN B12 DEFICIENCY [None]
  - WEIGHT INCREASED [None]
